FAERS Safety Report 19718768 (Version 1)
Quarter: 2021Q3

REPORT INFORMATION
  Report Type: Spontaneous
  Country: CZ (occurrence: CZ)
  Receive Date: 20210818
  Receipt Date: 20210818
  Transmission Date: 20211014
  Serious: Yes (Other)
  Sender: FDA-Public Use
  Company Number: CZ-MYLANLABS-2021M1050406

PATIENT
  Sex: Male

DRUGS (2)
  1. TIAPRIDE [Concomitant]
     Active Substance: TIAPRIDE
     Dosage: UNK
  2. ESCITALOPRAM [Suspect]
     Active Substance: ESCITALOPRAM OXALATE
     Indication: ATTENTION DEFICIT HYPERACTIVITY DISORDER
     Dosage: UNK

REACTIONS (3)
  - Drug abuse [Unknown]
  - Fatigue [Unknown]
  - Drug ineffective [Unknown]
